FAERS Safety Report 4721482-1 (Version None)
Quarter: 2005Q3

REPORT INFORMATION
  Report Type: 
  Country: None (occurrence: None)
  Receive Date: 20050721
  Receipt Date: 20041005
  Transmission Date: 20060218
  Serious: No
  Sender: FDA-Public Use
  Company Number: US-BRISTOL-MYERS SQUIBB COMPANY-12722302

PATIENT
  Age: 82 Year
  Sex: Female
  Weight: 61 kg

DRUGS (4)
  1. COUMADIN [Suspect]
     Indication: ATRIAL FIBRILLATION
     Route: 048
     Dates: start: 20040501
  2. ATACAND [Concomitant]
     Dates: start: 20040501
  3. TOPROL-XL [Concomitant]
     Dates: start: 20040501
  4. DIGITEK [Concomitant]
     Dates: start: 20040501

REACTIONS (1)
  - ALOPECIA [None]
